FAERS Safety Report 5918405-6 (Version None)
Quarter: 2008Q4

REPORT INFORMATION
  Report Type: 
  Country: None (occurrence: None)
  Receive Date: 20081010
  Receipt Date: 20080930
  Transmission Date: 20090506
  Serious: Yes (Life-Threatening, Hospitalization)
  Sender: FDA-Public Use
  Company Number: 2005-127348-NL

PATIENT
  Age: 15 Year
  Sex: Female

DRUGS (3)
  1. MIRTAZAPINE [Suspect]
     Indication: MAJOR DEPRESSION
     Dosage: 45 MG QD ORAL
     Route: 048
     Dates: start: 20040216, end: 20041130
  2. OXAZEPAM [Concomitant]
  3. QUETIAPINE FUMARATE [Concomitant]

REACTIONS (6)
  - AGGRESSION [None]
  - ANGER [None]
  - LIVER DISORDER [None]
  - MULTIPLE DRUG OVERDOSE [None]
  - SUICIDE ATTEMPT [None]
  - TREATMENT NONCOMPLIANCE [None]
